FAERS Safety Report 6044430-3 (Version None)
Quarter: 2009Q1

REPORT INFORMATION
  Report Type: 
  Country: None (occurrence: None)
  Receive Date: 20090115
  Receipt Date: 20090115
  Transmission Date: 20090719
  Serious: No
  Sender: FDA-Public Use
  Company Number: None

PATIENT
  Sex: Female
  Weight: 63.18 kg

DRUGS (9)
  1. LISINOPRIL [Suspect]
     Dosage: 5MG TABLET 5 MG QD MG QD ORAL
     Route: 048
     Dates: start: 20081008, end: 20090114
  2. ATENOLOL [Concomitant]
  3. CELEXA [Concomitant]
  4. FOLTX (FOLIC ACID/PYRIDOXINE HCL/CYANOCOBALAMIN) [Concomitant]
  5. OSCAL 500 + D (CALCIUM CARBONATE 1250 MG (500MG ELEM CA)/  VIT D 125 I [Concomitant]
  6. PRILOSEC OTC (OMEPRAZOLE OTC) [Concomitant]
  7. TIMOPTIC [Concomitant]
  8. XALATAN [Concomitant]
  9. ZOSTAVAX (ZOSTER VACCINE LIVE (PF)) [Concomitant]

REACTIONS (1)
  - COUGH [None]
